FAERS Safety Report 8789701 (Version 1)
Quarter: 2012Q4

REPORT INFORMATION
  Report Type: Spontaneous
  Country: US (occurrence: None)
  Receive Date: 20120911
  Receipt Date: 20120911
  Transmission Date: 20130627
  Serious: Yes (Hospitalization)
  Sender: FDA-Public Use
  Company Number: None

PATIENT
  Age: 63 Year
  Sex: Male
  Weight: 111.4 kg

DRUGS (3)
  1. SULFAMETHOXAZOLE/TRIMETHOPRIM [Suspect]
     Indication: URINARY TRACT INFECTION
     Route: 048
     Dates: start: 20120825, end: 20120825
  2. SULFAMETHOXAZOLE/TRIMETHOPRIM [Suspect]
     Indication: PYELONEPHRITIS
     Route: 048
     Dates: start: 20120825, end: 20120825
  3. TIZANIDINE [Suspect]
     Route: 048
     Dates: start: 20120825, end: 20120825

REACTIONS (3)
  - Hypotension [None]
  - Syncope [None]
  - Urinary incontinence [None]
